FAERS Safety Report 20733780 (Version 3)
Quarter: 2022Q2

REPORT INFORMATION
  Report Type: Report from Study
  Country: US (occurrence: US)
  Receive Date: 20220421
  Receipt Date: 20220509
  Transmission Date: 20220720
  Serious: Yes (Other)
  Sender: FDA-Public Use
  Company Number: US-INSMED, INC.-2022-01008-US

PATIENT
  Age: 64 Year
  Sex: Male

DRUGS (1)
  1. ARIKAYCE [Suspect]
     Active Substance: AMIKACIN
     Indication: Mycobacterium avium complex infection
     Dosage: 590 MILLIGRAM, QD
     Route: 055
     Dates: start: 20220411, end: 20220419

REACTIONS (5)
  - Oxygen saturation decreased [Recovering/Resolving]
  - Dyspnoea [Recovering/Resolving]
  - Palpitations [Unknown]
  - Dyspnoea exertional [Unknown]
  - Dysgeusia [Unknown]

NARRATIVE: CASE EVENT DATE: 20220411
